FAERS Safety Report 7303898-2 (Version None)
Quarter: 2011Q1

REPORT INFORMATION
  Report Type: 
  Country: None (occurrence: None)
  Receive Date: 20110221
  Receipt Date: 20110214
  Transmission Date: 20110831
  Serious: Yes (Other)
  Sender: FDA-Public Use
  Company Number: B0701022A

PATIENT
  Sex: Female

DRUGS (1)
  1. SEROXAT [Suspect]
     Route: 065

REACTIONS (6)
  - DIARRHOEA [None]
  - IMMUNOLOGY TEST [None]
  - AUTONOMIC NERVOUS SYSTEM IMBALANCE [None]
  - CONTUSION [None]
  - DRUG INTOLERANCE [None]
  - ASTHENIA [None]
